FAERS Safety Report 7322913-3 (Version None)
Quarter: 2011Q1

REPORT INFORMATION
  Report Type: 
  Country: None (occurrence: None)
  Receive Date: 20110214
  Receipt Date: 20110204
  Transmission Date: 20110831
  Serious: Yes (Hospitalization, Other)
  Sender: FDA-Public Use
  Company Number: 2010SP061929

PATIENT
  Age: 42 Year
  Sex: Female
  Weight: 50 kg

DRUGS (3)
  1. IMPLANON (ETONOGESTREL /01502301/) [Suspect]
     Indication: CONTRACEPTION
     Dosage: 1 DF, SC
     Route: 058
     Dates: start: 20100521, end: 20101214
  2. ETONOGESTREL (IMPLANT RADIOPAQUE) [Concomitant]
  3. STILNOX [Concomitant]

REACTIONS (1)
  - BREAST NEOPLASM [None]
